FAERS Safety Report 4786033-4 (Version None)
Quarter: 2005Q3

REPORT INFORMATION
  Report Type: 
  Country: None (occurrence: None)
  Receive Date: 20050930
  Receipt Date: 20050920
  Transmission Date: 20060218
  Serious: Yes (Hospitalization, Disabling)
  Sender: FDA-Public Use
  Company Number: 2005JP001846

PATIENT
  Age: 44 Year
  Sex: Male
  Weight: 60 kg

DRUGS (9)
  1. FUNGUARD(MICAFUNGIN) INJECTION [Suspect]
     Dosage: UNK, IV NOS
     Route: 042
     Dates: start: 20050513, end: 20050515
  2. TARGOCID [Suspect]
     Dosage: UNKNOWN
     Route: 065
     Dates: start: 20050502, end: 20050506
  3. TARGOCID [Suspect]
     Dosage: UNKNOWN
     Route: 065
     Dates: start: 20050511, end: 20050513
  4. FLUMARIN (FLOMOXEF SODIUM) [Suspect]
     Dosage: UNKNOWN
     Route: 065
     Dates: start: 20050430, end: 20050501
  5. EXACIN (ISEPAMICIN SULFATE) UNKNOWN [Suspect]
     Dosage: UNKNOWN
     Route: 065
     Dates: start: 20050430, end: 20050501
  6. MEROPEN (MEROPENEM) UNKNOWN [Suspect]
     Dosage: UNKNOWN
     Route: 065
     Dates: start: 20050502, end: 20050506
  7. MEROPEN (MEROPENEM) UNKNOWN [Suspect]
     Dosage: UNKNOWN
     Route: 065
     Dates: start: 20050511, end: 20050513
  8. VANCOMYCIN HYDROCHLORIDE [Suspect]
     Dosage: UNKNOWN
     Route: 065
     Dates: start: 20050513, end: 20050515
  9. CIPROXAN (CIPROFLOXACIN) UNKNOWN [Suspect]
     Dosage: UNKNOWN
     Route: 065
     Dates: start: 20050513, end: 20050515

REACTIONS (10)
  - ARTHRITIS BACTERIAL [None]
  - DIARRHOEA [None]
  - DISSEMINATED INTRAVASCULAR COAGULATION [None]
  - HYPOXIA [None]
  - INTERSTITIAL LUNG DISEASE [None]
  - LIVER DISORDER [None]
  - OEDEMA PERIPHERAL [None]
  - PULMONARY OEDEMA [None]
  - PYREXIA [None]
  - VOMITING [None]
